FAERS Safety Report 7457393-0 (Version None)
Quarter: 2011Q2

REPORT INFORMATION
  Report Type: 
  Country: None (occurrence: None)
  Receive Date: 20110503
  Receipt Date: 20110503
  Transmission Date: 20111010
  Serious: Yes (Hospitalization, Other)
  Sender: FDA-Public Use
  Company Number: None

PATIENT
  Age: 59 Year
  Sex: Male
  Weight: 127.0072 kg

DRUGS (4)
  1. VICTOZA [Suspect]
     Indication: WEIGHT DECREASED
     Dosage: .6 MG DAILY IM
     Route: 030
     Dates: start: 20110324, end: 20110327
  2. VICTOZA [Suspect]
     Indication: DIABETES MELLITUS
     Dosage: .6 MG DAILY IM
     Route: 030
     Dates: start: 20110324, end: 20110327
  3. VICTOZA [Suspect]
     Indication: WEIGHT DECREASED
     Dosage: .6 MG DAILY IM
     Route: 030
     Dates: start: 20110325, end: 20110327
  4. VICTOZA [Suspect]
     Indication: DIABETES MELLITUS
     Dosage: .6 MG DAILY IM
     Route: 030
     Dates: start: 20110325, end: 20110327

REACTIONS (3)
  - ENDOCARDITIS [None]
  - INTRASPINAL ABSCESS [None]
  - STREPTOCOCCAL INFECTION [None]
